FAERS Safety Report 18490807 (Version 1)
Quarter: 2020Q4

REPORT INFORMATION
  Report Type: Other
  Country: SE (occurrence: SE)
  Receive Date: 20201111
  Receipt Date: 20201111
  Transmission Date: 20210114
  Serious: Yes (Other)
  Sender: FDA-Public Use
  Company Number: SE-DENTSPLY-2020SCDP000354

PATIENT
  Age: 73 Year
  Sex: Female

DRUGS (1)
  1. ORAQIX [Suspect]
     Active Substance: LIDOCAINE\PRILOCAINE
     Indication: ANAESTHESIA PROCEDURE
     Dosage: 1 TOTAL, 1.7G /AMPULL 1/5 AMPULL (ORAQIX PERIODONTALGEL)
     Route: 004
     Dates: start: 20201013, end: 20201013

REACTIONS (3)
  - Swelling [Recovered/Resolved]
  - Cough [Recovered/Resolved]
  - Dyspnoea [Recovered/Resolved]

NARRATIVE: CASE EVENT DATE: 20201013
